FAERS Safety Report 13526013 (Version 1)
Quarter: 2017Q2

REPORT INFORMATION
  Report Type: Spontaneous
  Country: JP (occurrence: JP)
  Receive Date: 20170509
  Receipt Date: 20170509
  Transmission Date: 20170830
  Serious: Yes (Other)
  Sender: FDA-Public Use
  Company Number: JP-AMGEN-JPNSP2017070593

PATIENT
  Sex: Male

DRUGS (4)
  1. ETOPOSIDE. [Concomitant]
     Active Substance: ETOPOSIDE
     Indication: TESTIS CANCER
     Dosage: UNK
     Route: 041
  2. CISPLATIN. [Concomitant]
     Active Substance: CISPLATIN
     Indication: TESTIS CANCER
     Dosage: UNK
     Route: 041
  3. G-LASTA [Suspect]
     Active Substance: PEGFILGRASTIM
     Indication: COLONY STIMULATING FACTOR PROPHYLAXIS
     Dosage: UNK
     Route: 058
  4. BLEOMYCIN HYDROCHLORIDE [Concomitant]
     Active Substance: BLEOMYCIN HYDROCHLORIDE
     Indication: TESTIS CANCER
     Dosage: UNK
     Route: 041

REACTIONS (1)
  - Chemotherapy [Unknown]
